FAERS Safety Report 5793637-9 (Version None)
Quarter: 2008Q2

REPORT INFORMATION
  Report Type: 
  Country: None (occurrence: None)
  Receive Date: 20080627
  Receipt Date: 20080619
  Transmission Date: 20081010
  Serious: Yes (Hospitalization, Other)
  Sender: FDA-Public Use
  Company Number: US-ABBOTT-08P-163-0458666-00

PATIENT
  Sex: Female
  Weight: 53.572 kg

DRUGS (8)
  1. HUMIRA [Suspect]
     Indication: RHEUMATOID ARTHRITIS
     Dosage: 1 SYRINGE EVERY OTHER WEEK, 40 MG OR 70 MG
     Route: 050
     Dates: start: 20060101
  2. METHOTREXATE [Concomitant]
     Indication: RHEUMATOID ARTHRITIS
     Dosage: 8 TABLETS WEEKLY, 2.5 MG
     Route: 048
     Dates: start: 20010101
  3. PREDNISONE [Concomitant]
     Indication: EYE DISORDER
     Route: 048
  4. PREDNISONE [Concomitant]
     Indication: SYSTEMIC LUPUS ERYTHEMATOSUS
  5. TOLTERODINE TARTRATE [Concomitant]
     Indication: BLADDER DISORDER
     Route: 048
     Dates: start: 20050101
  6. K PILLS [Concomitant]
     Indication: BLOOD POTASSIUM DECREASED
     Route: 048
     Dates: start: 20070901
  7. FOLIC ACID [Concomitant]
     Indication: ANAEMIA
     Route: 048
     Dates: start: 20010101
  8. FOLIC ACID [Concomitant]
     Indication: VITAMIN SUPPLEMENTATION

REACTIONS (9)
  - AXILLARY MASS [None]
  - BLOOD POTASSIUM DECREASED [None]
  - GAIT DISTURBANCE [None]
  - HEPATIC ENZYME INCREASED [None]
  - INJECTION SITE IRRITATION [None]
  - MALAISE [None]
  - PANCREATITIS [None]
  - STAPHYLOCOCCAL INFECTION [None]
  - WEIGHT DECREASED [None]
